FAERS Safety Report 6294145-1 (Version None)
Quarter: 2009Q3

REPORT INFORMATION
  Report Type: 
  Country: None (occurrence: None)
  Receive Date: 20090803
  Receipt Date: 20090105
  Transmission Date: 20100115
  Serious: No
  Sender: FDA-Public Use
  Company Number: A0762320A

PATIENT
  Age: 40 Year
  Sex: Male

DRUGS (2)
  1. NICORETTE (MINT) [Suspect]
  2. NICOTINE GUM 4MG UNKNOWN BRAND [Suspect]

REACTIONS (1)
  - INTENTIONAL DRUG MISUSE [None]
